FAERS Safety Report 14154527 (Version 15)
Quarter: 2020Q2

REPORT INFORMATION
  Report Type: Report from Study
  Country: US (occurrence: US)
  Receive Date: 20171102
  Receipt Date: 20200618
  Transmission Date: 20200713
  Serious: Yes (Hospitalization, Other)
  Sender: FDA-Public Use
  Company Number: US-ACTELION-A-NJ2017-158827

PATIENT
  Age: 61 Year
  Sex: Female
  Weight: 99.32 kg

DRUGS (24)
  1. ACETAMINOPHEN. [Concomitant]
     Active Substance: ACETAMINOPHEN
     Dosage: UNK
     Dates: start: 20200203
  2. ONDANSETRON [Concomitant]
     Active Substance: ONDANSETRON
  3. CALCIUM [Concomitant]
     Active Substance: CALCIUM
     Dosage: UNK
     Dates: start: 20200203
  4. TRAMADOL. [Concomitant]
     Active Substance: TRAMADOL
     Dosage: UNK
     Dates: start: 20200203
  5. PANTOPRAZOLE [Concomitant]
     Active Substance: PANTOPRAZOLE
  6. PSEUDOEPHEDRINE. [Concomitant]
     Active Substance: PSEUDOEPHEDRINE HYDROCHLORIDE
     Dosage: UNK
     Dates: start: 20200203
  7. SILDENAFIL CITRATE. [Concomitant]
     Active Substance: SILDENAFIL CITRATE
  8. FENTANYL. [Concomitant]
     Active Substance: FENTANYL
  9. GABAPENTIN. [Concomitant]
     Active Substance: GABAPENTIN
     Dosage: UNK
     Dates: start: 20200203
  10. GLUCOSAMINE + CHONDROITIN [Concomitant]
     Dosage: UNK
     Dates: start: 20200203
  11. VELETRI [Suspect]
     Active Substance: EPOPROSTENOL
     Dosage: 20 NG/KG, PER MIN
     Route: 042
  12. VELETRI [Suspect]
     Active Substance: EPOPROSTENOL
     Dosage: 23 NG/KG, PER MIN
     Route: 042
  13. CEFAZOLIN [Concomitant]
     Active Substance: CEFAZOLIN
  14. POLYETHYLENE GLYCOL [Concomitant]
     Active Substance: POLYETHYLENE GLYCOLS
  15. VELETRI [Suspect]
     Active Substance: EPOPROSTENOL
     Dosage: 24 NG/KG, PER MIN
     Route: 042
  16. MULTI VITAMIN [Concomitant]
     Active Substance: VITAMINS
     Dosage: UNK
     Dates: start: 20200203
  17. LOPERAMIDE [Concomitant]
     Active Substance: LOPERAMIDE
     Dosage: UNK
     Dates: start: 20200203
  18. OPSUMIT [Suspect]
     Active Substance: MACITENTAN
     Dosage: UNK
     Route: 048
  19. ENOXAPARIN [Concomitant]
     Active Substance: ENOXAPARIN
  20. OPSUMIT [Suspect]
     Active Substance: MACITENTAN
     Indication: PULMONARY HYPERTENSION
     Dosage: 10 MG, QD
     Route: 048
     Dates: start: 20160712
  21. VELETRI [Suspect]
     Active Substance: EPOPROSTENOL
     Indication: PULMONARY HYPERTENSION
     Dosage: 26 NG/KG, PER MIN
     Route: 042
  22. BUPIVACAINE. [Concomitant]
     Active Substance: BUPIVACAINE
  23. HYDROMORPHONE [Concomitant]
     Active Substance: HYDROMORPHONE
  24. OMEPRAZOLE. [Concomitant]
     Active Substance: OMEPRAZOLE
     Dosage: UNK
     Dates: start: 20200202

REACTIONS (43)
  - Diarrhoea [Not Recovered/Not Resolved]
  - Insomnia [Unknown]
  - Chest discomfort [Unknown]
  - Localised oedema [Recovering/Resolving]
  - Debridement [Recovering/Resolving]
  - Localised infection [Recovering/Resolving]
  - CREST syndrome [Unknown]
  - Alanine aminotransferase increased [Recovered/Resolved]
  - Tendonitis [Unknown]
  - Rash erythematous [Unknown]
  - Neuropathy peripheral [Unknown]
  - Nausea [Unknown]
  - Rash [Unknown]
  - Anxiety [Unknown]
  - Pain in extremity [Recovering/Resolving]
  - Irrigation therapy [Recovering/Resolving]
  - Pain [Unknown]
  - Sinusitis [Unknown]
  - Neuralgia [Unknown]
  - Nervousness [Unknown]
  - Biliary colic [Recovered/Resolved]
  - Cholelithiasis [Recovered/Resolved]
  - Skin ulcer [Recovering/Resolving]
  - Calcinosis [Recovering/Resolving]
  - Erythema [Recovering/Resolving]
  - Pallor [Unknown]
  - Feeling abnormal [Unknown]
  - Abscess drainage [Recovering/Resolving]
  - Incisional drainage [Recovering/Resolving]
  - Fatigue [Unknown]
  - Respiratory tract infection [Unknown]
  - Headache [Unknown]
  - Cholecystectomy [Recovered/Resolved]
  - Abdominal pain [Recovered/Resolved]
  - Condition aggravated [Unknown]
  - Dyspepsia [Unknown]
  - Abdominal discomfort [Not Recovered/Not Resolved]
  - Pain in jaw [Unknown]
  - Dyspnoea [Unknown]
  - Cold sweat [Unknown]
  - Device leakage [Unknown]
  - Nodule [Recovering/Resolving]
  - Abscess limb [Recovering/Resolving]

NARRATIVE: CASE EVENT DATE: 2016
